FAERS Safety Report 4665503-3 (Version None)
Quarter: 2005Q2

REPORT INFORMATION
  Report Type: 
  Country: None (occurrence: None)
  Receive Date: 20050519
  Receipt Date: 20050308
  Transmission Date: 20051028
  Serious: No
  Sender: FDA-Public Use
  Company Number: US-BRISTOL-MYERS SQUIBB COMPANY-12891032

PATIENT
  Age: 55 Year
  Sex: Female

DRUGS (1)
  1. CYTOXAN [Suspect]

REACTIONS (1)
  - WHITE BLOOD CELL COUNT DECREASED [None]
